FAERS Safety Report 25847022 (Version 1)
Quarter: 2025Q3

REPORT INFORMATION
  Report Type: Spontaneous
  Country: US (occurrence: None)
  Receive Date: 20250923
  Receipt Date: 20250923
  Transmission Date: 20251020
  Serious: No
  Sender: FDA-CTU
  Company Number: None

PATIENT
  Sex: Female

DRUGS (2)
  1. ENBREL [Suspect]
     Active Substance: ETANERCEPT
     Route: 058
     Dates: start: 20250826
  2. HYDROCORTISONE [Concomitant]
     Active Substance: HYDROCORTISONE

REACTIONS (8)
  - Injection site erythema [None]
  - Injection site vesicles [None]
  - Injection site pruritus [None]
  - Injection site pain [None]
  - Injection site inflammation [None]
  - Injection site bruising [None]
  - Drug ineffective [None]
  - Therapy cessation [None]
